FAERS Safety Report 8850777 (Version 1)
Quarter: 2012Q4

REPORT INFORMATION
  Report Type: 
  Country: US (occurrence: US)
  Receive Date: 20121019
  Receipt Date: 20121019
  Transmission Date: 20130627
  Serious: Yes (Other)
  Sender: FDA-Public Use
  Company Number: US-BAYER-2012-109397

PATIENT
  Age: 61 Year
  Sex: Male
  Weight: 118 kg

DRUGS (9)
  1. TRASYLOL [Suspect]
     Indication: CORONARY ARTERY BYPASS
     Dosage: UNK
     Dates: start: 20040802
  2. VERSED [Concomitant]
     Dosage: 16 mg, UNK
     Route: 042
     Dates: start: 20040802
  3. FENTANYL [Concomitant]
     Dosage: 48 mg, UNK
     Route: 042
     Dates: start: 20040802
  4. LEVOPHED [Concomitant]
     Dosage: UNK UNK, PRN
     Route: 042
     Dates: start: 20040802
  5. NITROGLYCERIN [Concomitant]
     Dosage: UNK UNK, PRN
     Route: 042
     Dates: start: 20040802
  6. INSULIN [Concomitant]
     Dosage: 20 u, UNK
     Route: 042
     Dates: start: 20040802
  7. BIVALIRUDIN [Concomitant]
     Dosage: 118 mg, UNK
     Route: 042
     Dates: start: 20040802
  8. MAGNESIUM [Concomitant]
     Dosage: 2.5 g, UNK
     Route: 042
     Dates: start: 20040802
  9. NEOSYNEPHRINE [PHENYLEPHRINE HYDROCHLORIDE] [Concomitant]
     Dosage: UNK UNK, PRN
     Route: 042
     Dates: start: 20040802

REACTIONS (1)
  - Renal failure [Unknown]
